FAERS Safety Report 7394406-9 (Version None)
Quarter: 2011Q2

REPORT INFORMATION
  Report Type: 
  Country: None (occurrence: None)
  Receive Date: 20110405
  Receipt Date: 20110328
  Transmission Date: 20111010
  Serious: Yes (Hospitalization, Other)
  Sender: FDA-Public Use
  Company Number: US-ASTRAZENECA-2011SE17715

PATIENT
  Age: 44 Year
  Sex: Female
  Weight: 82.6 kg

DRUGS (7)
  1. SEROQUEL [Suspect]
     Dosage: 25-400 MG
     Route: 048
     Dates: start: 20010215
  2. LASIX [Concomitant]
     Dates: start: 20080501
  3. COUMADIN [Concomitant]
     Dates: start: 20080516
  4. CELEXA [Concomitant]
     Dates: start: 20080501
  5. PRIVINIL [Concomitant]
     Dosage: 10-20 MG
     Dates: start: 20010215
  6. PAXIL [Concomitant]
     Dates: start: 20010215
  7. NITROSTAT [Concomitant]
     Dates: start: 20080501

REACTIONS (10)
  - CONVULSION [None]
  - CARDIAC FAILURE CONGESTIVE [None]
  - ESSENTIAL HYPERTENSION [None]
  - TYPE 2 DIABETES MELLITUS [None]
  - CARDIAC DISORDER [None]
  - CORONARY ARTERY DISEASE [None]
  - ASTHMA [None]
  - CHRONIC OBSTRUCTIVE PULMONARY DISEASE [None]
  - PULMONARY EMBOLISM [None]
  - CHEST PAIN [None]
